FAERS Safety Report 5794044-5 (Version None)
Quarter: 2008Q2

REPORT INFORMATION
  Report Type: 
  Country: None (occurrence: None)
  Receive Date: 20080627
  Receipt Date: 20080618
  Transmission Date: 20081010
  Serious: Yes (Hospitalization, Other)
  Sender: FDA-Public Use
  Company Number: US-ABBOTT-08P-163-0458181-00

PATIENT
  Sex: Male
  Weight: 108.96 kg

DRUGS (4)
  1. SIMCOR [Suspect]
     Indication: BLOOD TRIGLYCERIDES INCREASED
     Dates: start: 20080501, end: 20080604
  2. SIMCOR [Suspect]
     Dosage: 500/20 MG
     Dates: start: 20080604
  3. SITAGLIPTIN PHOSPHATE [Concomitant]
     Indication: DIABETES MELLITUS
  4. INSULIN [Concomitant]
     Indication: DIABETES MELLITUS
     Route: 058

REACTIONS (7)
  - ASTHENIA [None]
  - DEHYDRATION [None]
  - HEADACHE [None]
  - INFLUENZA LIKE ILLNESS [None]
  - MENINGITIS VIRAL [None]
  - MUSCULOSKELETAL STIFFNESS [None]
  - PYREXIA [None]
